FAERS Safety Report 7602099-8 (Version None)
Quarter: 2011Q3

REPORT INFORMATION
  Report Type: 
  Country: None (occurrence: None)
  Receive Date: 20110711
  Receipt Date: 20110413
  Transmission Date: 20111222
  Serious: Yes (Other)
  Sender: FDA-Public Use
  Company Number: US-BAYER-2011-017927

PATIENT
  Sex: Male
  Weight: 83 kg

DRUGS (60)
  1. MULTIHANCE [Suspect]
     Indication: NUCLEAR MAGNETIC RESONANCE IMAGING
  2. EPOGEN [Concomitant]
  3. NORVASC [Concomitant]
  4. PHOSLO [Concomitant]
  5. NEPHROCAPS [VIT C,VIT H,B12,B9,B3,PANTOTHEN AC,B6,B2,B1 HCL] [Concomitant]
  6. PERCOCET [Concomitant]
  7. PLAVIX [Concomitant]
  8. SODIUM POLYSTYRENE SULFONATE [Concomitant]
  9. HUMULIN [INSULIN HUMAN INJECTION, ISOPHANE] [Concomitant]
  10. OMNISCAN [Suspect]
     Indication: NUCLEAR MAGNETIC RESONANCE IMAGING
  11. LASIX [Concomitant]
  12. POTASSIUM CHLORIDE [Concomitant]
  13. MECLIZINE [Concomitant]
  14. KAYEXALATE [Concomitant]
  15. ASCORBIC ACID [Concomitant]
  16. MAGNEVIST [Suspect]
     Indication: NUCLEAR MAGNETIC RESONANCE IMAGING
     Dosage: 20 ML, ONCE
     Route: 042
     Dates: start: 19980518, end: 19980518
  17. CYTOXAN [Concomitant]
  18. NEURONTIN [Concomitant]
  19. FLOMAX [Concomitant]
  20. COUMADIN [Concomitant]
  21. WARFARIN SODIUM [Concomitant]
  22. OPTIMARK [Suspect]
     Indication: NUCLEAR MAGNETIC RESONANCE IMAGING
  23. PREDNISONE [Concomitant]
  24. ACETAMINOPHEN [Concomitant]
  25. PREVACID [Concomitant]
  26. RENAGEL [Concomitant]
  27. AMIODARONE HCL [Concomitant]
  28. FISH OIL [Concomitant]
  29. RENVELA [Concomitant]
  30. OPTIMARK [Suspect]
     Indication: ANGIOGRAM
  31. COVERA-HS [Concomitant]
  32. CLONIDINE [Concomitant]
  33. MAGNEVIST [Suspect]
     Indication: NUCLEAR MAGNETIC RESONANCE IMAGING BRAIN
  34. HYDRALAZINE HCL [Concomitant]
  35. CATAPRES [Concomitant]
  36. DARVOCET [Concomitant]
  37. NEXIUM [Concomitant]
  38. LIPITOR [Concomitant]
  39. ASPIRIN [Concomitant]
  40. MAGNEVIST [Suspect]
     Indication: ANGIOGRAM
  41. MAGNEVIST [Suspect]
  42. DEMADEX [Concomitant]
  43. NORVASC [Concomitant]
  44. MONOPRIL [Concomitant]
  45. PEPCID [Concomitant]
  46. ANCEF [Concomitant]
  47. ACCUPRIL [Concomitant]
  48. VERPAMIL HCL [Concomitant]
  49. LOPRESSOR [Concomitant]
  50. NOVOLIN [INSULIN] [Concomitant]
  51. LEVOTHYROXINE SODIUM [Concomitant]
  52. OMNISCAN [Suspect]
     Indication: ANGIOGRAM
  53. MULTIHANCE [Suspect]
     Indication: ANGIOGRAM
  54. PROHANCE [Suspect]
     Indication: NUCLEAR MAGNETIC RESONANCE IMAGING
  55. PROHANCE [Suspect]
     Indication: ANGIOGRAM
  56. ZAROXOLYN [Concomitant]
  57. DIURIL [Concomitant]
  58. DIOVAN [Concomitant]
  59. SENSIPAR [Concomitant]
  60. PROCRIT [Concomitant]

REACTIONS (11)
  - PAIN [None]
  - SKIN HYPERTROPHY [None]
  - STASIS DERMATITIS [None]
  - DRY SKIN [None]
  - NEPHROGENIC SYSTEMIC FIBROSIS [None]
  - JOINT RANGE OF MOTION DECREASED [None]
  - OEDEMA PERIPHERAL [None]
  - SKIN TIGHTNESS [None]
  - SKIN DISCOLOURATION [None]
  - RASH [None]
  - PRURITUS [None]
